FAERS Safety Report 6928761-8 (Version None)
Quarter: 2010Q3

REPORT INFORMATION
  Report Type: 
  Country: None (occurrence: None)
  Receive Date: 20100809
  Receipt Date: 20100224
  Transmission Date: 20110219
  Serious: No
  Sender: FDA-Public Use
  Company Number: US-000935

PATIENT
  Sex: Male

DRUGS (5)
  1. DEGARELIX (80 MG, 80 MG, 240 MG) [Suspect]
     Indication: PRODUCT USED FOR UNKNOWN INDICATION
     Dosage: SUBCUTANEOUS
     Route: 058
     Dates: start: 20090818, end: 20090818
  2. ACTONEL [Concomitant]
  3. CALCIUM [Concomitant]
  4. PREVACID [Concomitant]
  5. DAILY MULTIVITAMIN [Concomitant]

REACTIONS (3)
  - INJECTION SITE PAIN [None]
  - INJECTION SITE SWELLING [None]
  - MUSCLE SPASMS [None]
